FAERS Safety Report 7811907-7 (Version None)
Quarter: 2011Q4

REPORT INFORMATION
  Report Type: 
  Country: None (occurrence: None)
  Receive Date: 20111013
  Receipt Date: 20111004
  Transmission Date: 20120403
  Serious: Yes (Other)
  Sender: FDA-Public Use
  Company Number: PHHY2011BR88424

PATIENT
  Sex: Male
  Weight: 77 kg

DRUGS (4)
  1. SIMVACOR [Concomitant]
     Dosage: 20 MG, DAILY
     Route: 048
  2. DIOVAN [Suspect]
     Dosage: 1 TABLET (320 MG), DAILY
     Route: 048
  3. METFORMIN HCL [Concomitant]
     Indication: DIABETES MELLITUS
     Dosage: 850 MG, BID
     Route: 048
  4. GLICLAZIDE [Concomitant]
     Indication: DIABETES MELLITUS
     Dosage: 1 DF, UNK

REACTIONS (1)
  - VENOUS OCCLUSION [None]
